FAERS Safety Report 8888610 (Version 1)
Quarter: 2012Q4

REPORT INFORMATION
  Report Type: 
  Country: US (occurrence: US)
  Receive Date: 20121106
  Receipt Date: 20121106
  Transmission Date: 20130627
  Serious: Yes (Other)
  Sender: FDA-Public Use
  Company Number: US-EISAI INC-E3810-06048-SPO-US

PATIENT
  Age: 82 Year
  Sex: Male

DRUGS (8)
  1. ACIPHEX (RABEPRAZOLE) [Suspect]
     Route: 048
  2. XARELTO [Suspect]
     Indication: ATRIAL FIBRILLATION
     Dosage: UNKNOWN
     Route: 048
  3. LASIX [Concomitant]
     Route: 048
  4. DILANTIN [Concomitant]
     Route: 048
  5. LOTENSIN [Concomitant]
     Route: 048
  6. CARVEDILOL [Concomitant]
     Indication: BLOOD PRESSURE
     Route: 048
  7. LIPITOR [Concomitant]
     Route: 048
  8. DIAZEPAM [Concomitant]
     Route: 048

REACTIONS (4)
  - Haemorrhage intracranial [Unknown]
  - Syncope [Recovered/Resolved]
  - Trismus [Unknown]
  - Pain in extremity [Unknown]
